FAERS Safety Report 25187484 (Version 1)
Quarter: 2025Q2

REPORT INFORMATION
  Report Type: Spontaneous
  Country: JP (occurrence: JP)
  Receive Date: 20250411
  Receipt Date: 20250411
  Transmission Date: 20250717
  Serious: Yes (Other)
  Sender: ASTELLAS
  Company Number: JP-ASTELLAS-2025-AER-018163

PATIENT
  Age: 9 Decade

DRUGS (3)
  1. PADCEV [Suspect]
     Active Substance: ENFORTUMAB VEDOTIN-EJFV
     Indication: Ureteric cancer
     Route: 065
     Dates: start: 202407
  2. PADCEV [Suspect]
     Active Substance: ENFORTUMAB VEDOTIN-EJFV
     Route: 065
  3. PADCEV [Suspect]
     Active Substance: ENFORTUMAB VEDOTIN-EJFV
     Route: 065

REACTIONS (3)
  - Rash [Recovered/Resolved]
  - Dry eye [Not Recovered/Not Resolved]
  - Cataract [Unknown]
